FAERS Safety Report 14838448 (Version 5)
Quarter: 2018Q4

REPORT INFORMATION
  Report Type: Spontaneous
  Country: US (occurrence: US)
  Receive Date: 20180502
  Receipt Date: 20181025
  Transmission Date: 20190204
  Serious: Yes (Hospitalization)
  Sender: FDA-Public Use
  Company Number: US-ACTELION-A-US2018-170819

PATIENT
  Age: 65 Year
  Sex: Female
  Weight: 72.11 kg

DRUGS (7)
  1. REVATIO [Concomitant]
     Active Substance: SILDENAFIL CITRATE
  2. UPTRAVI [Suspect]
     Active Substance: SELEXIPAG
     Dosage: 800 MCG, BID
     Route: 048
  3. UPTRAVI [Suspect]
     Active Substance: SELEXIPAG
     Indication: PULMONARY HYPERTENSION
     Dosage: 800 MCG, BID
     Route: 048
  4. VELETRI [Concomitant]
     Active Substance: EPOPROSTENOL
     Indication: PULMONARY ARTERIAL HYPERTENSION
  5. TRACLEER [Suspect]
     Active Substance: BOSENTAN
     Indication: PULMONARY HYPERTENSION
     Dosage: 125 MG, BID
     Route: 048
  6. UPTRAVI [Suspect]
     Active Substance: SELEXIPAG
     Dosage: 1000 MCG, BID
     Route: 048
  7. AMLODIPINE [Concomitant]
     Active Substance: AMLODIPINE BESYLATE

REACTIONS (13)
  - Myalgia [Recovered/Resolved]
  - Chest pain [Unknown]
  - Pulmonary hypertension [Unknown]
  - Asthenia [Unknown]
  - Musculoskeletal pain [Recovered/Resolved]
  - Muscular weakness [Recovered/Resolved]
  - Dizziness [Unknown]
  - Heart rate increased [Unknown]
  - Condition aggravated [Unknown]
  - Therapy change [Unknown]
  - Fatigue [Unknown]
  - Bone pain [Recovered/Resolved]
  - Dyspnoea [Unknown]
